FAERS Safety Report 4449584-8 (Version None)
Quarter: 2004Q3

REPORT INFORMATION
  Report Type: 
  Country: None (occurrence: None)
  Receive Date: 20040913
  Receipt Date: 20040913
  Transmission Date: 20050211
  Serious: Yes (Other)
  Sender: FDA-Public Use
  Company Number: None

PATIENT
  Sex: Male
  Weight: 73.9363 kg

DRUGS (1)
  1. SUPHEDRINE TABLETS 30 MG SAVON/OSCO /ALBERTSON [Suspect]
     Indication: EAR CONGESTION
     Dosage: 60 MG EVERY 4 HOURS
     Dates: start: 20040908, end: 20040908

REACTIONS (1)
  - RASH ERYTHEMATOUS [None]
